FAERS Safety Report 6079701-8 (Version None)
Quarter: 2009Q1

REPORT INFORMATION
  Report Type: 
  Country: None (occurrence: None)
  Receive Date: 20090211
  Receipt Date: 20090204
  Transmission Date: 20090719
  Serious: Yes (Hospitalization)
  Sender: FDA-Public Use
  Company Number: FABR-1000631

PATIENT
  Age: 43 Year
  Sex: Male
  Weight: 67 kg

DRUGS (11)
  1. FABRAZYME [Suspect]
     Indication: FABRY'S DISEASE
     Dosage: 70 MG, QOW, INTRAVENOUS
     Route: 042
     Dates: start: 20030101
  2. DICLOFENAC (DICLOFENAC) [Concomitant]
  3. PANTOPRAZOLE SODIUM [Concomitant]
  4. DIMENHYDRINATE [Concomitant]
  5. SOLU-DECORTIN-H (PREDNISOLONE SODIUM SUCCINATE) [Concomitant]
  6. DIPIDOLOR (PIRITRAMIDE) [Concomitant]
  7. TETRAZEPAM (TETRAZEPAM) [Concomitant]
  8. TEGRETOL [Concomitant]
  9. LYRICA [Concomitant]
  10. LEVOTHYROXINE SODIUM [Concomitant]
  11. AMITRIPTYLINE HYDROCHLORIDE [Concomitant]

REACTIONS (7)
  - ABDOMINAL PAIN UPPER [None]
  - DEPRESSED LEVEL OF CONSCIOUSNESS [None]
  - INTERVERTEBRAL DISC DEGENERATION [None]
  - INTERVERTEBRAL DISC PROTRUSION [None]
  - MUSCULOSKELETAL PAIN [None]
  - NAUSEA [None]
  - SCIATICA [None]
